FAERS Safety Report 7544015-3 (Version None)
Quarter: 2011Q2

REPORT INFORMATION
  Report Type: 
  Country: None (occurrence: None)
  Receive Date: 20110613
  Receipt Date: 20040927
  Transmission Date: 20111010
  Serious: Yes (Hospitalization)
  Sender: FDA-Public Use
  Company Number: PHHO2004JP11747

PATIENT
  Sex: Male
  Weight: 61 kg

DRUGS (14)
  1. DIOVAN [Suspect]
     Indication: HYPERTENSION
     Dosage: 40 MG, QD
     Route: 048
     Dates: start: 20030121, end: 20030123
  2. SELBEX [Concomitant]
     Indication: GASTRIC ULCER
     Dates: end: 20030825
  3. PREDNISOLONE [Concomitant]
     Indication: IGA NEPHROPATHY
  4. WARFARIN SODIUM [Concomitant]
     Indication: ATRIAL FIBRILLATION
  5. DIOVAN [Suspect]
     Dosage: 80 MG / DAY
     Route: 048
     Dates: start: 20030124
  6. FAMOTIDINE [Concomitant]
     Indication: GASTRIC ULCER
     Dates: end: 20030825
  7. TAMSULOSIN HCL [Concomitant]
     Indication: BENIGN PROSTATIC HYPERPLASIA
  8. LANIRAPID [Concomitant]
     Indication: CARDIAC FAILURE
  9. LASIX [Concomitant]
     Indication: HYPERTENSION
     Dosage: 80 MG / DAY
     Route: 048
     Dates: start: 20030131
  10. RABEPRAZOLE SODIUM [Concomitant]
     Indication: GASTRIC ULCER
  11. INDERAL [Concomitant]
     Indication: HYPERTENSION
     Dosage: 10 MG / DAY
     Route: 048
  12. BUFFERIN [Concomitant]
     Indication: ANGINA PECTORIS
  13. SOLU-MEDROL [Concomitant]
     Indication: IGA NEPHROPATHY
     Dates: end: 20030307
  14. AMLODIPINE [Concomitant]
     Indication: HYPERTENSION
     Dosage: 5 MG / DAY
     Route: 048

REACTIONS (10)
  - GASTRIC ADENOMA [None]
  - GASTRIC CANCER [None]
  - DIARRHOEA [None]
  - MEGAKARYOCYTES INCREASED [None]
  - CONSTIPATION [None]
  - IDIOPATHIC THROMBOCYTOPENIC PURPURA [None]
  - ASPIRATION BONE MARROW [None]
  - COLONIC POLYP [None]
  - HYPERURICAEMIA [None]
  - EPISTAXIS [None]
